FAERS Safety Report 8389879 (Version 2)
Quarter: 2012Q4

REPORT INFORMATION
  Report Type: 
  Country: US (occurrence: US)
  Receive Date: 20120203
  Receipt Date: 20121018
  Transmission Date: 20130627
  Serious: Yes (Other)
  Sender: FDA-Public Use
  Company Number: PHEH2012US002241

PATIENT
  Sex: Male

DRUGS (1)
  1. AREDIA [Suspect]
     Dosage: 90 mg, UNK
     Route: 042
     Dates: start: 200006

REACTIONS (12)
  - Spinal osteoarthritis [Unknown]
  - Osteopenia [Unknown]
  - Gallbladder disorder [Unknown]
  - Gallbladder oedema [Unknown]
  - Hepatic steatosis [Unknown]
  - Hyperbilirubinaemia [Unknown]
  - Engraftment syndrome [Unknown]
  - Neutropenic colitis [Unknown]
  - Lymphohistiocytosis [Unknown]
  - Bone marrow failure [Unknown]
  - Mediastinal abscess [Unknown]
  - Mucosal inflammation [Unknown]
